FAERS Safety Report 8548856-5 (Version None)
Quarter: 2012Q3

REPORT INFORMATION
  Report Type: 
  Country: None (occurrence: None)
  Receive Date: 20120730
  Receipt Date: 20120725
  Transmission Date: 20120928
  Serious: Yes (Death, Hospitalization, Other)
  Sender: FDA-Public Use
  Company Number: PHHY2012BR064663

PATIENT
  Sex: Female
  Weight: 49 kg

DRUGS (2)
  1. FORMOTEROL FUMARATE [Suspect]
     Indication: BRONCHITIS
     Dosage: 2 DF, ONE INHALATION AT MORNING AN ONE AT NIGHT
  2. FORMOTEROL FUMARATE [Suspect]
     Indication: DYSPNOEA

REACTIONS (6)
  - ASTHENIA [None]
  - DYSPNOEA [None]
  - WRONG DRUG ADMINISTERED [None]
  - PNEUMONIA [None]
  - MITRAL VALVE DISEASE [None]
  - INCORRECT DOSE ADMINISTERED [None]
